FAERS Safety Report 9915565 (Version 1)
Quarter: 2014Q1

REPORT INFORMATION
  Report Type: Spontaneous
  Country: ES (occurrence: ES)
  Receive Date: 20140221
  Receipt Date: 20140221
  Transmission Date: 20141002
  Serious: Yes (Hospitalization)
  Sender: FDA-Public Use
  Company Number: ES-AMGEN-ESPSP2014010519

PATIENT
  Age: 65 Year
  Sex: Female

DRUGS (6)
  1. NEUPOGEN [Suspect]
     Indication: PRODUCT USED FOR UNKNOWN INDICATION
     Dosage: 300 MUG, QD
     Route: 058
     Dates: start: 20131223, end: 20131225
  2. MABTHERA [Suspect]
     Indication: NON-HODGKIN^S LYMPHOMA
     Dosage: 600 MG, UNK
     Route: 042
     Dates: start: 20131218, end: 20131218
  3. CICLOFOSFAMIDA [Suspect]
     Indication: NON-HODGKIN^S LYMPHOMA
     Dosage: 1400 MG, QD
     Route: 042
     Dates: start: 20131218, end: 20131218
  4. ADRIAMYCIN /00330901/ [Suspect]
     Indication: NON-HODGKIN^S LYMPHOMA
     Dosage: 100 MG, QD
     Route: 042
     Dates: start: 20131218, end: 20131218
  5. VINCRISTINA [Suspect]
     Indication: NON-HODGKIN^S LYMPHOMA
     Dosage: 2 MG, QD
     Route: 042
     Dates: start: 20131218, end: 20131218
  6. PREDNISONA [Suspect]
     Indication: NON-HODGKIN^S LYMPHOMA
     Dosage: 100 MG, QD
     Route: 042
     Dates: start: 20131218, end: 20131223

REACTIONS (1)
  - Inappropriate antidiuretic hormone secretion [Recovering/Resolving]
